FAERS Safety Report 9905996 (Version 2)
Quarter: 2014Q1

REPORT INFORMATION
  Report Type: Spontaneous
  Country: US (occurrence: US)
  Receive Date: 20140218
  Receipt Date: 20140218
  Transmission Date: 20141002
  Serious: No
  Sender: FDA-Public Use
  Company Number: US-GILEAD-2012-0055225

PATIENT
  Sex: Female
  Weight: 99.77 kg

DRUGS (11)
  1. LETAIRIS [Suspect]
     Indication: PULMONARY HYPERTENSION
     Dosage: 10 MG, UNK
     Route: 048
     Dates: start: 20111230, end: 20120517
  2. LETAIRIS [Suspect]
     Indication: AUTOIMMUNE DISORDER
  3. AZATHIOPRINE [Concomitant]
  4. AMLODIPINE [Concomitant]
  5. PREDNISONE [Concomitant]
  6. OMEPRAZOLE [Concomitant]
  7. NORTRIPTYLINE [Concomitant]
  8. BOSENTAN [Concomitant]
  9. SILDENAFIL [Concomitant]
     Indication: PULMONARY HYPERTENSION
  10. TEARS RENEWED                      /00635701/ [Concomitant]
  11. ASPIRIN [Concomitant]

REACTIONS (5)
  - Oxygen saturation decreased [Recovering/Resolving]
  - Unevaluable event [Recovering/Resolving]
  - Activities of daily living impaired [Recovering/Resolving]
  - Nasopharyngitis [Recovering/Resolving]
  - Dyspnoea [Recovering/Resolving]
